FAERS Safety Report 9179785 (Version 1)
Quarter: 2012Q4

REPORT INFORMATION
  Report Type: Report from Study
  Country: CA (occurrence: CA)
  Receive Date: 20121029
  Receipt Date: 20121029
  Transmission Date: 20130627
  Serious: Yes (Other)
  Sender: FDA-Public Use
  Company Number: CA-JNJFOC-20121011017

PATIENT
  Sex: Female

DRUGS (3)
  1. REMICADE [Suspect]
     Indication: ANKYLOSING SPONDYLITIS
     Route: 042
     Dates: start: 20110317, end: 20120328
  2. FLEXERIL [Concomitant]
     Route: 065
  3. FENTANYL [Concomitant]
     Route: 065

REACTIONS (1)
  - Prurigo [Recovering/Resolving]
